FAERS Safety Report 18556478 (Version 10)
Quarter: 2021Q3

REPORT INFORMATION
  Report Type: Report from Study
  Country: US (occurrence: US)
  Receive Date: 20201128
  Receipt Date: 20210906
  Transmission Date: 20211014
  Serious: Yes (Death, Hospitalization, Other)
  Sender: FDA-Public Use
  Company Number: US-TAKEDA-2020TUS050732

PATIENT
  Age: 78 Year
  Sex: Female
  Weight: 65.3 kg

DRUGS (31)
  1. PULMICORT TURBUHALER [Concomitant]
     Active Substance: BUDESONIDE
  2. PERFOROMIST [Concomitant]
     Active Substance: FORMOTEROL FUMARATE DIHYDRATE
  3. POTASSIUM [Concomitant]
     Active Substance: POTASSIUM
  4. PREDNISONE. [Concomitant]
     Active Substance: PREDNISONE
  5. SODIUM CHLORIDE. [Concomitant]
     Active Substance: SODIUM CHLORIDE
  6. XANAX [Concomitant]
     Active Substance: ALPRAZOLAM
     Route: 065
  7. ASPIRIN [ACETYLSALICYLIC ACID] [Concomitant]
     Active Substance: ASPIRIN
     Route: 065
  8. ZYRTEC [Concomitant]
     Active Substance: CETIRIZINE HYDROCHLORIDE
  9. MULTIVITAMINS [VITAMINS NOS] [Concomitant]
     Active Substance: VITAMINS
     Route: 065
  10. LEVOFLOXACIN. [Concomitant]
     Active Substance: LEVOFLOXACIN
     Dosage: UNK
     Route: 065
  11. ACETAMINOPHEN. [Concomitant]
     Active Substance: ACETAMINOPHEN
  12. LIDOCAINE. [Concomitant]
     Active Substance: LIDOCAINE
  13. CALCIUM + D3 [CALCIUM CARBONATE;COLECALCIFEROL] [Concomitant]
  14. MAGNESIUM OXIDE. [Concomitant]
     Active Substance: MAGNESIUM OXIDE
  15. ZYRTEC R [Concomitant]
     Active Substance: CETIRIZINE HYDROCHLORIDE
  16. YUPELRI [Concomitant]
     Active Substance: REVEFENACIN
  17. MUCINEX [Concomitant]
     Active Substance: GUAIFENESIN
  18. FISH OIL [EICOSAPENTAENOIC ACID] [Concomitant]
     Active Substance: ICOSAPENT
  19. OXYGEN. [Concomitant]
     Active Substance: OXYGEN
  20. ALBUTEROL SULFATE. [Concomitant]
     Active Substance: ALBUTEROL SULFATE
  21. ESTRADIOL. [Concomitant]
     Active Substance: ESTRADIOL
  22. DIPHENHYDRAMINE. [Concomitant]
     Active Substance: DIPHENHYDRAMINE
  23. XARELTO [Concomitant]
     Active Substance: RIVAROXABAN
  24. EPINEPHRINE. [Concomitant]
     Active Substance: EPINEPHRINE
  25. MAG?OX [Concomitant]
     Active Substance: MAGNESIUM OXIDE
  26. HUMAN NORMAL IMMUNOGLOBULIN; LIQUID [Suspect]
     Active Substance: HUMAN IMMUNOGLOBULIN G
     Indication: IMMUNODEFICIENCY COMMON VARIABLE
     Dosage: 25 GRAM, Q4WEEKS
     Route: 042
     Dates: start: 20200917
  27. TORSEMIDE. [Concomitant]
     Active Substance: TORSEMIDE
  28. ALBUTEROL HFA [Concomitant]
     Active Substance: ALBUTEROL SULFATE
  29. AZITHROMYCIN ANHYDROUS. [Concomitant]
     Active Substance: AZITHROMYCIN ANHYDROUS
  30. TORSEMIDE. [Concomitant]
     Active Substance: TORSEMIDE
  31. MODERNA COVID?19 VACCINE [Concomitant]
     Active Substance: CX-024414

REACTIONS (17)
  - Sputum discoloured [Unknown]
  - Eye swelling [Unknown]
  - Respiratory tract infection [Unknown]
  - Facial paralysis [Unknown]
  - Pain in extremity [Unknown]
  - Pneumonia [Unknown]
  - Gait disturbance [Unknown]
  - Peripheral swelling [Unknown]
  - Sciatica [Unknown]
  - Cough [Unknown]
  - Dyspnoea [Unknown]
  - Vascular compression [Unknown]
  - Choking [Unknown]
  - Chronic obstructive pulmonary disease [Unknown]
  - Muscular weakness [Unknown]
  - Death [Fatal]
  - Fall [Unknown]

NARRATIVE: CASE EVENT DATE: 20201216
